FAERS Safety Report 5530772-4 (Version None)
Quarter: 2007Q4

REPORT INFORMATION
  Report Type: 
  Country: None (occurrence: None)
  Receive Date: 20071130
  Receipt Date: 20071116
  Transmission Date: 20080405
  Serious: Yes (Hospitalization, Disabling, Other)
  Sender: FDA-Public Use
  Company Number: US-ELI_LILLY_AND_COMPANY-US200711003906

PATIENT
  Sex: Female

DRUGS (10)
  1. PROZAC [Suspect]
     Indication: DEPRESSION
     Dosage: 60 MG, DAILY (1/D)
     Route: 048
  2. PROZAC [Suspect]
     Dosage: 40 MG, DAILY (1/D)
     Route: 048
     Dates: start: 20071101
  3. XANAX [Concomitant]
     Indication: ALCOHOLIC
  4. PROVIGIL [Concomitant]
  5. ZOLOFT [Concomitant]
  6. SEROQUEL [Concomitant]
  7. ABILIFY [Concomitant]
  8. ASPIRIN [Concomitant]
     Dosage: UNK, UNK
     Dates: start: 20071104
  9. ANTIBIOTICS [Concomitant]
  10. ALCOHOL [Concomitant]

REACTIONS (18)
  - BACTERIAL INFECTION [None]
  - BLOOD ALCOHOL [None]
  - CARDIAC ARREST [None]
  - CEREBROVASCULAR ACCIDENT [None]
  - DIARRHOEA [None]
  - FEELING ABNORMAL [None]
  - FOAMING AT MOUTH [None]
  - GALLBLADDER OPERATION [None]
  - GRAND MAL CONVULSION [None]
  - HEART RATE INCREASED [None]
  - LOWER LIMB FRACTURE [None]
  - PETIT MAL EPILEPSY [None]
  - PNEUMONIA [None]
  - PRURITUS [None]
  - RESPIRATORY ARREST [None]
  - SEROTONIN SYNDROME [None]
  - SOCIAL PROBLEM [None]
  - VOMITING [None]
